FAERS Safety Report 10025230 (Version 1)
Quarter: 2014Q1

REPORT INFORMATION
  Report Type: Spontaneous
  Country: US (occurrence: None)
  Receive Date: 20140314
  Receipt Date: 20140314
  Transmission Date: 20141002
  Serious: Yes (Hospitalization)
  Sender: FDA-Public Use
  Company Number: COM-002040

PATIENT
  Age: 57 Year
  Sex: Female
  Weight: 87.09 kg

DRUGS (1)
  1. NIGHT TIME MULTI-SYMPTOM COLD/FLU RELIEF [Suspect]
     Indication: NASOPHARYNGITIS
     Route: 048
     Dates: start: 20140119, end: 20140119

REACTIONS (4)
  - Dizziness [None]
  - Abdominal pain upper [None]
  - Vomiting [None]
  - Product contamination physical [None]
